FAERS Safety Report 7150167-X (Version None)
Quarter: 2010Q4

REPORT INFORMATION
  Report Type: 
  Country: None (occurrence: None)
  Receive Date: 20101126
  Receipt Date: 20101112
  Transmission Date: 20110411
  Serious: Yes (Hospitalization)
  Sender: FDA-Public Use
  Company Number: CV20100639

PATIENT
  Sex: Male

DRUGS (4)
  1. INTRALIPID 20% [Suspect]
     Indication: PARENTERAL NUTRITION
     Dosage: INTRAVENOUS
     Route: 042
  2. INTRALIPID 20% [Suspect]
  3. INTRALIPID 20% [Suspect]
  4. TPN [Suspect]
     Indication: PARENTERAL NUTRITION
     Dosage: INTRAVENOUS
     Route: 042

REACTIONS (1)
  - MENINGITIS [None]
